FAERS Safety Report 12857288 (Version 1)
Quarter: 2016Q4

REPORT INFORMATION
  Report Type: Not Available
  Country: AU (occurrence: AU)
  Receive Date: 20161018
  Receipt Date: 20161018
  Transmission Date: 20170207
  Serious: Yes (Death, Hospitalization)
  Sender: FDA-Public Use
  Company Number: AU-NAPPMUNDI-GBR-2016-0040943

PATIENT
  Age: 89 Year
  Sex: Female
  Weight: 81 kg

DRUGS (2)
  1. HYDROMORPHONE HYDROCHLORIDE. [Suspect]
     Active Substance: HYDROMORPHONE HYDROCHLORIDE
     Dosage: 0.1 ML, DAILY
     Route: 065
     Dates: start: 20150526, end: 2015
  2. HYDROMORPHONE HYDROCHLORIDE. [Suspect]
     Active Substance: HYDROMORPHONE HYDROCHLORIDE
     Indication: ANALGESIC THERAPY
     Dosage: UNK
     Route: 065
     Dates: start: 20150620

REACTIONS (2)
  - Toxicity to various agents [Fatal]
  - Pneumonia [Fatal]

NARRATIVE: CASE EVENT DATE: 20150707
